FAERS Safety Report 10415203 (Version 2)
Quarter: 2014Q3

REPORT INFORMATION
  Report Type: Spontaneous
  Country: US (occurrence: US)
  Receive Date: 20140828
  Receipt Date: 20140828
  Transmission Date: 20150326
  Serious: No
  Sender: FDA-Public Use
  Company Number: US-PFIZER INC-2014169233

PATIENT
  Age: 57 Year
  Sex: Female

DRUGS (3)
  1. ENBREL [Suspect]
     Active Substance: ETANERCEPT
     Indication: RHEUMATOID ARTHRITIS
     Dosage: 50 MG, WEEKLY
     Route: 058
     Dates: start: 20140409, end: 20140423
  2. GABAPENTIN. [Suspect]
     Active Substance: GABAPENTIN
     Dosage: UNK, THREE TIMES PER DAY
     Dates: start: 20140409, end: 20140423
  3. METHOTREXATE [Suspect]
     Active Substance: METHOTREXATE
     Dosage: 0.8 ML FROM VIAL OF 50 MG /ML INJ WEEKLY
     Route: 058

REACTIONS (9)
  - Anxiety [Unknown]
  - Malaise [Recovered/Resolved]
  - Rash [Recovered/Resolved]
  - Feeling drunk [Recovered/Resolved]
  - Disorientation [Recovered/Resolved]
  - Mobility decreased [Recovered/Resolved]
  - Skin ulcer [Recovered/Resolved]
  - Vomiting [Recovered/Resolved]
  - Nausea [Not Recovered/Not Resolved]

NARRATIVE: CASE EVENT DATE: 201404
